FAERS Safety Report 21453378 (Version 3)
Quarter: 2022Q4

REPORT INFORMATION
  Report Type: Spontaneous
  Country: US (occurrence: US)
  Receive Date: 20221013
  Receipt Date: 20221122
  Transmission Date: 20230113
  Serious: No
  Sender: FDA-Public Use
  Company Number: US-BRISTOL-MYERS SQUIBB COMPANY-2022-022697

PATIENT
  Age: 62 Year
  Sex: Female

DRUGS (2)
  1. REVLIMID [Suspect]
     Active Substance: LENALIDOMIDE
     Indication: Plasma cell myeloma
     Dosage: TAKE ONE CAPSULE BY MOUTH ONCE A DAY FOR 14 DAYS OFF FOR 7 DAYS.
     Route: 048
     Dates: start: 20210111
  2. REVLIMID [Suspect]
     Active Substance: LENALIDOMIDE
     Dosage: TAKE ONE CAPSULE BY MOUTH ONCE A DAY FOR 14 DAYS OFF FOR 7 DAYS.
     Route: 048

REACTIONS (3)
  - Off label use [Unknown]
  - Influenza [Unknown]
  - Product distribution issue [Unknown]
